FAERS Safety Report 6671247-9 (Version None)
Quarter: 2010Q2

REPORT INFORMATION
  Report Type: 
  Country: None (occurrence: None)
  Receive Date: 20100406
  Receipt Date: 20100406
  Transmission Date: 20101027
  Serious: No
  Sender: FDA-Public Use
  Company Number: None

PATIENT
  Age: 74 Year
  Sex: Female
  Weight: 78.4723 kg

DRUGS (7)
  1. ACTONEL [Suspect]
     Indication: OSTEOPOROSIS
     Dosage: 1 TABLET PER 30 DAYS
     Dates: start: 20100317
  2. VITIAMS [Concomitant]
  3. OYSTER SHELL + CALCIUM [Concomitant]
  4. CHOLEST OFF [Concomitant]
  5. FISH OIL [Concomitant]
  6. ELDERBERRY JUICE [Concomitant]
  7. CENTRAL VIT W/VIT + MINERALS [Concomitant]

REACTIONS (10)
  - ARTHRALGIA [None]
  - BONE PAIN [None]
  - DYSPNOEA [None]
  - FATIGUE [None]
  - GASTRIC DISORDER [None]
  - MUSCLE SPASMS [None]
  - PAIN IN JAW [None]
  - PRURITUS [None]
  - RASH [None]
  - THERMAL BURN [None]
